FAERS Safety Report 8651320 (Version 2)
Quarter: 2012Q4

REPORT INFORMATION
  Report Type: Report from Study
  Country: CA (occurrence: CA)
  Receive Date: 20120705
  Receipt Date: 20121017
  Transmission Date: 20130627
  Serious: Yes (Other)
  Sender: FDA-Public Use
  Company Number: CA-ABBOTT-12P-028-0951081-00

PATIENT
  Sex: Female

DRUGS (1)
  1. HUMIRA [Suspect]
     Indication: PSORIASIS
     Route: 058
     Dates: start: 20090321

REACTIONS (3)
  - Haemorrhoids [Recovered/Resolved]
  - Anal cancer [Not Recovered/Not Resolved]
  - Psoriasis [Not Recovered/Not Resolved]
